FAERS Safety Report 7391237-0 (Version None)
Quarter: 2011Q2

REPORT INFORMATION
  Report Type: 
  Country: None (occurrence: None)
  Receive Date: 20110404
  Receipt Date: 20100630
  Transmission Date: 20111010
  Serious: No
  Sender: FDA-Public Use
  Company Number: US-PFIZER INC-2010068559

PATIENT
  Age: 29 Year
  Sex: Female
  Weight: 90.703 kg

DRUGS (6)
  1. ZOLOFT [Suspect]
     Indication: ANXIETY
  2. PROZAC [Suspect]
     Indication: ANXIETY
  3. WELLBUTRIN [Suspect]
     Indication: ANXIETY
  4. ZOLOFT [Suspect]
     Indication: PANIC ATTACK
  5. WELLBUTRIN [Suspect]
     Indication: PANIC ATTACK
  6. PROZAC [Suspect]
     Indication: PANIC ATTACK

REACTIONS (1)
  - DRUG INEFFECTIVE [None]
